FAERS Safety Report 20711413 (Version 1)
Quarter: 2022Q2

REPORT INFORMATION
  Report Type: Spontaneous
  Country: FR (occurrence: FR)
  Receive Date: 20220414
  Receipt Date: 20220414
  Transmission Date: 20220721
  Serious: Yes (Hospitalization)
  Sender: FDA-Public Use
  Company Number: None

PATIENT
  Age: 65 Year
  Sex: Female
  Weight: 48 kg

DRUGS (2)
  1. KEYTRUDA [Suspect]
     Active Substance: PEMBROLIZUMAB
     Indication: Lung adenocarcinoma
     Dosage: 200 MILLIGRAM, CYCLICAL, D1-D21 3 WEEK CYCLE, CONCENTRATION: 25 MILLIGRAM/ MILLILITER
     Route: 042
     Dates: start: 20220117, end: 20220117
  2. PEMETREXED [Suspect]
     Active Substance: PEMETREXED
     Indication: Lung adenocarcinoma
     Dosage: 662.5 MILLIGRAM, CYCLICAL (D1-D21 3 WEEK CYCLE), CONCENTRATION: 25 MG/ML
     Route: 042
     Dates: start: 20220117, end: 20220117

REACTIONS (1)
  - Pancytopenia [Recovered/Resolved]

NARRATIVE: CASE EVENT DATE: 20220128
